FAERS Safety Report 15584982 (Version 2)
Quarter: 2018Q4

REPORT INFORMATION
  Report Type: Spontaneous
  Country: CZ (occurrence: CZ)
  Receive Date: 20181102
  Receipt Date: 20181107
  Transmission Date: 20190205
  Serious: Yes (Hospitalization)
  Sender: FDA-Public Use
  Company Number: CZ-ELI_LILLY_AND_COMPANY-CZ201810013459

PATIENT
  Age: 52 Year
  Sex: Female

DRUGS (7)
  1. LARTRUVO [Suspect]
     Active Substance: OLARATUMAB
     Indication: LEIOMYOSARCOMA
     Dosage: 1260 MG, UNKNOWN
     Route: 042
     Dates: start: 20181024, end: 20181024
  2. DITHIADEN [Concomitant]
     Active Substance: BISULEPIN
     Indication: INFUSION RELATED REACTION
     Dosage: 0.5 MG, UNK
     Dates: start: 20181024
  3. DITHIADEN [Concomitant]
     Active Substance: BISULEPIN
     Dosage: UNK
     Route: 065
     Dates: start: 20181101
  4. LARTRUVO [Suspect]
     Active Substance: OLARATUMAB
     Dosage: 1260 MG, UNKNOWN
     Route: 065
     Dates: start: 20181101
  5. DITHIADEN [Concomitant]
     Active Substance: BISULEPIN
     Indication: PREMEDICATION
     Dosage: 1 MG, UNK
     Route: 065
     Dates: start: 20181024
  6. LARTRUVO [Suspect]
     Active Substance: OLARATUMAB
     Dosage: 1260 MG, UNKNOWN
     Route: 065
     Dates: start: 20181024, end: 20181024
  7. DOXORUBICINE                       /00330901/ [Concomitant]
     Active Substance: DOXORUBICIN
     Indication: LEIOMYOSARCOMA
     Dosage: UNK, UNKNOWN
     Route: 065

REACTIONS (1)
  - Infusion related reaction [Recovered/Resolved]

NARRATIVE: CASE EVENT DATE: 20181024
